FAERS Safety Report 5860781-7 (Version None)
Quarter: 2008Q3

REPORT INFORMATION
  Report Type: 
  Country: None (occurrence: None)
  Receive Date: 20080827
  Receipt Date: 20071113
  Transmission Date: 20090109
  Serious: No
  Sender: FDA-Public Use
  Company Number: US-ABBOTT-07P-163-0424918-00

PATIENT
  Sex: Male

DRUGS (5)
  1. NIASPAN [Suspect]
     Indication: DRUG USE FOR UNKNOWN INDICATION
     Dosage: WHITE
     Route: 048
     Dates: start: 20070301
  2. NIASPAN [Suspect]
     Dosage: WHITE
  3. NIASPAN [Suspect]
     Dosage: WHITE
  4. NIASPAN [Suspect]
     Dosage: COATED
  5. EQUATE BRAND MULTIVITAMIN (OTC) [Concomitant]
     Indication: DRUG USE FOR UNKNOWN INDICATION
     Route: 048

REACTIONS (3)
  - DRUG INEFFECTIVE [None]
  - LABORATORY TEST ABNORMAL [None]
  - MEDICATION RESIDUE [None]
